FAERS Safety Report 4607127-X (Version None)
Quarter: 2005Q1

REPORT INFORMATION
  Report Type: 
  Country: None (occurrence: None)
  Receive Date: 20050309
  Receipt Date: 20050221
  Transmission Date: 20050727
  Serious: Yes (Hospitalization)
  Sender: FDA-Public Use
  Company Number: US_0502113463

PATIENT
  Sex: Female

DRUGS (1)
  1. HUMULIN L [Suspect]
     Indication: DIABETES MELLITUS
     Dates: start: 19840101

REACTIONS (7)
  - DEHYDRATION [None]
  - DRUG EXPOSURE DURING PREGNANCY [None]
  - PHARMACEUTICAL PRODUCT COMPLAINT [None]
  - PREGNANCY [None]
  - PREMATURE LABOUR [None]
  - VOMITING [None]
  - WHITE BLOOD CELL COUNT INCREASED [None]
